FAERS Safety Report 14337693 (Version 1)
Quarter: 2017Q4

REPORT INFORMATION
  Report Type: Spontaneous
  Country: US (occurrence: US)
  Receive Date: 20171228
  Receipt Date: 20171228
  Transmission Date: 20180321
  Serious: Yes (Other)
  Sender: FDA-Public Use
  Company Number: None

PATIENT
  Age: 69 Year
  Sex: Female
  Weight: 70.76 kg

DRUGS (10)
  1. HYDROCHLOROTIAZE-TRIAMTERNE [Concomitant]
  2. VITAMIN D2 [Concomitant]
     Active Substance: ERGOCALCIFEROL
  3. HAIR SKIN + NAILS (NATURE MADE) [Concomitant]
  4. ASA [Concomitant]
     Active Substance: ASPIRIN
  5. BREO ELLIPTA [Suspect]
     Active Substance: FLUTICASONE FUROATE\VILANTEROL TRIFENATATE
     Indication: ASTHMA
     Dosage: 200MCG/25MCG PER BLISTER 1 PUFF DAILY DAILY MOUTH (INH)
     Route: 048
     Dates: start: 201703, end: 20171205
  6. BISACODY SUPP [Concomitant]
  7. FLONASE [Concomitant]
     Active Substance: FLUTICASONE PROPIONATE
  8. NORVASC [Concomitant]
     Active Substance: AMLODIPINE BESYLATE
  9. CETIRIZINE [Concomitant]
     Active Substance: CETIRIZINE HYDROCHLORIDE
  10. POWERFIBER [Concomitant]

REACTIONS (4)
  - Nausea [None]
  - Abdominal distension [None]
  - Abdominal pain upper [None]
  - Heart rate increased [None]

NARRATIVE: CASE EVENT DATE: 20171205
